FAERS Safety Report 15751162 (Version 1)
Quarter: 2018Q4

REPORT INFORMATION
  Report Type: Spontaneous
  Country: US (occurrence: US)
  Receive Date: 20181221
  Receipt Date: 20181221
  Transmission Date: 20190205
  Serious: No
  Sender: FDA-Public Use
  Company Number: US-THERAPEUTICSMD-2018TMD00144

PATIENT
  Age: 57 Year
  Sex: Female
  Weight: 61.68 kg

DRUGS (7)
  1. ALBUTEROL INHALER [Concomitant]
     Active Substance: ALBUTEROL
  2. FOLIC ACID. [Concomitant]
     Active Substance: FOLIC ACID
  3. PROAIR INHALER [Concomitant]
     Active Substance: ALBUTEROL SULFATE
  4. FLOVENT HFA [Concomitant]
     Active Substance: FLUTICASONE PROPIONATE
  5. IMVEXXY [Suspect]
     Active Substance: ESTRADIOL
     Indication: VULVOVAGINAL DRYNESS
     Dosage: 10 ?G, 1X/DAY ^UPRIGHT AND ACTIVE^ AFTER DOSING IN MORNING
     Route: 048
     Dates: start: 20180812, end: 20180826
  6. LEVOTHYROXINE. [Concomitant]
     Active Substance: LEVOTHYROXINE
  7. VITAMIN B12 [Concomitant]
     Active Substance: CYANOCOBALAMIN

REACTIONS (6)
  - Incorrect route of product administration [Recovered/Resolved]
  - Hypertension [Recovered/Resolved]
  - Joint swelling [Recovered/Resolved]
  - Product prescribing error [Recovered/Resolved]
  - Peripheral swelling [Recovered/Resolved]
  - Off label use [Recovered/Resolved]

NARRATIVE: CASE EVENT DATE: 201808
